FAERS Safety Report 9781039 (Version 1)
Quarter: 2013Q4

REPORT INFORMATION
  Report Type: Spontaneous
  Country: US (occurrence: None)
  Receive Date: 20131223
  Receipt Date: 20131223
  Transmission Date: 20140711
  Serious: Yes (Other)
  Sender: FDA-Public Use
  Company Number: None

PATIENT
  Age: 55 Year
  Sex: Male
  Weight: 70.31 kg

DRUGS (2)
  1. ATORVASTATIN CALCIUM [Suspect]
     Indication: CARDIOVASCULAR DISORDER
     Dosage: 1 PILL ONCE DAILY TAKEN BY MOUTH
     Route: 048
     Dates: start: 20131208, end: 20131211
  2. ATORVASTATIN CALCIUM [Suspect]
     Indication: BLOOD CHOLESTEROL INCREASED
     Dosage: 1 PILL ONCE DAILY TAKEN BY MOUTH
     Route: 048
     Dates: start: 20131208, end: 20131211

REACTIONS (10)
  - Fatigue [None]
  - Disorientation [None]
  - Confusional state [None]
  - Urticaria [None]
  - Rash [None]
  - Fatigue [None]
  - Myalgia [None]
  - Arthralgia [None]
  - Oedema mouth [None]
  - Pharyngeal oedema [None]
